FAERS Safety Report 8356580-7 (Version None)
Quarter: 2012Q2

REPORT INFORMATION
  Report Type: 
  Country: None (occurrence: None)
  Receive Date: 20120514
  Receipt Date: 20120508
  Transmission Date: 20120825
  Serious: Yes (Other)
  Sender: FDA-Public Use
  Company Number: PHHY2012DE039741

PATIENT

DRUGS (5)
  1. MYFORTIC [Suspect]
     Route: 064
  2. CELLCEPT [Suspect]
     Route: 064
  3. METHYLDOPA [Suspect]
     Route: 064
  4. PREDNISONE TAB [Suspect]
     Route: 064
  5. AZATHIOPRINE [Suspect]
     Route: 064

REACTIONS (3)
  - PREMATURE BABY [None]
  - FOETAL EXPOSURE DURING PREGNANCY [None]
  - EXTERNAL AUDITORY CANAL ATRESIA [None]
